FAERS Safety Report 6975113-0 (Version None)
Quarter: 2010Q3

REPORT INFORMATION
  Report Type: 
  Country: None (occurrence: None)
  Receive Date: 20100910
  Receipt Date: 20090205
  Transmission Date: 20110219
  Serious: No
  Sender: FDA-Public Use
  Company Number: US-WYE-H08120909

PATIENT
  Age: 64 Year
  Sex: Female
  Weight: 63.56 kg

DRUGS (3)
  1. PRISTIQ [Suspect]
     Indication: DEPRESSION
     Route: 048
     Dates: start: 20090204
  2. WELLBUTRIN [Concomitant]
  3. IMITREX [Concomitant]

REACTIONS (2)
  - CONDITION AGGRAVATED [None]
  - NAUSEA [None]
